FAERS Safety Report 12047897 (Version 1)
Quarter: 2016Q1

REPORT INFORMATION
  Report Type: Report from Study
  Country: US (occurrence: US)
  Receive Date: 20160209
  Receipt Date: 20160209
  Transmission Date: 20160526
  Serious: Yes (Death, Hospitalization)
  Sender: FDA-Public Use
  Company Number: US-ROCHE-1704888

PATIENT
  Age: 56 Year

DRUGS (3)
  1. BEVACIZUMAB [Suspect]
     Active Substance: BEVACIZUMAB
     Indication: SQUAMOUS CELL CARCINOMA OF HEAD AND NECK
     Dosage: LAST DOSE OF ADMINISTRATION PRIOR TO ADVERSE EVENT: 26/OCT/2004
     Route: 042
     Dates: start: 20040903
  2. ERLOTINIB [Suspect]
     Active Substance: ERLOTINIB
     Indication: SQUAMOUS CELL CARCINOMA OF HEAD AND NECK
     Dosage: LAST DOSE OF ADMINISTRATION PRIOR TO ADVERSE EVENT: 10/NOV/2004
     Route: 048
     Dates: start: 20040903
  3. ROXANOL [Suspect]
     Active Substance: MORPHINE SULFATE
     Indication: SQUAMOUS CELL CARCINOMA OF HEAD AND NECK
     Route: 065

REACTIONS (4)
  - Disease progression [Fatal]
  - Dysphagia [Recovered/Resolved]
  - Pain [Recovered/Resolved]
  - Constipation [Recovered/Resolved]

NARRATIVE: CASE EVENT DATE: 20041109
